FAERS Safety Report 9029831 (Version 1)
Quarter: 2013Q1

REPORT INFORMATION
  Report Type: Spontaneous
  Country: CA (occurrence: CA)
  Receive Date: 20130124
  Receipt Date: 20130124
  Transmission Date: 20140127
  Serious: Yes (Other)
  Sender: FDA-Public Use
  Company Number: CHPA2013CA001382

PATIENT
  Age: 66 Year
  Sex: Male

DRUGS (1)
  1. HABITROL [Suspect]
     Indication: SMOKING CESSATION THERAPY
     Dosage: 21 MG DAILY
     Route: 062
     Dates: start: 20130107

REACTIONS (2)
  - Rash [Recovering/Resolving]
  - Drug hypersensitivity [Recovering/Resolving]
